FAERS Safety Report 24630936 (Version 1)
Quarter: 2024Q4

REPORT INFORMATION
  Report Type: Spontaneous
  Country: US (occurrence: US)
  Receive Date: 20241118
  Receipt Date: 20241118
  Transmission Date: 20250114
  Serious: Yes (Other)
  Sender: BAYER HEALTHCARE LLC
  Company Number: US-BAYER-2024A162176

PATIENT

DRUGS (1)
  1. AFRIN ORIGINAL NASAL [Suspect]
     Active Substance: OXYMETAZOLINE HYDROCHLORIDE
     Dosage: UNK
     Route: 065

REACTIONS (5)
  - Dependence [Unknown]
  - Anxiety [Unknown]
  - Stress [Unknown]
  - Initial insomnia [Unknown]
  - Sinus congestion [Unknown]
